FAERS Safety Report 5406055-X (Version None)
Quarter: 2007Q3

REPORT INFORMATION
  Report Type: 
  Country: None (occurrence: None)
  Receive Date: 20070802
  Receipt Date: 20070802
  Transmission Date: 20080115
  Serious: Yes (Other)
  Sender: FDA-Public Use
  Company Number: None

PATIENT
  Sex: Female
  Weight: 83.0083 kg

DRUGS (3)
  1. LANOXIN [Suspect]
     Indication: VENTRICULAR FIBRILLATION
     Dosage: 0.25 DAILY PO
     Route: 048
  2. CARDIZEM CD [Suspect]
     Indication: CORONARY ARTERY DISEASE
     Dosage: 240 MG DAILY PO
     Route: 048
  3. CARDIZEM CD [Suspect]
     Indication: HYPERTENSION
     Dosage: 240 MG DAILY PO
     Route: 048

REACTIONS (5)
  - BLOOD PRESSURE INADEQUATELY CONTROLLED [None]
  - DRUG INTOLERANCE [None]
  - HEART RATE IRREGULAR [None]
  - PHARMACEUTICAL PRODUCT COMPLAINT [None]
  - PULSE ABNORMAL [None]
